FAERS Safety Report 4785099-5 (Version None)
Quarter: 2005Q3

REPORT INFORMATION
  Report Type: 
  Country: None (occurrence: None)
  Receive Date: 20050928
  Receipt Date: 20050913
  Transmission Date: 20060218
  Serious: Yes (Hospitalization, Other)
  Sender: FDA-Public Use
  Company Number: EWC050945643

PATIENT
  Age: 74 Year
  Sex: Male

DRUGS (5)
  1. GEMCITABINE HYDROCHLORIDE-IV (GEMCITABINE) [Suspect]
     Indication: ADENOCARCINOMA PANCREAS
     Dosage: 1750 MG OTHER
     Dates: start: 20050526
  2. CAPECITABINE [Concomitant]
  3. ZOFRAN   / SCH/ (ONDANSETRON HYDROCHLORIDE) [Concomitant]
  4. CYCLOSPORINE [Concomitant]
  5. CELLCEPT [Concomitant]

REACTIONS (4)
  - DEHYDRATION [None]
  - HYPOVOLAEMIA [None]
  - POLYDIPSIA [None]
  - POLYURIA [None]
